FAERS Safety Report 8079749-8 (Version None)
Quarter: 2012Q1

REPORT INFORMATION
  Report Type: 
  Country: None (occurrence: None)
  Receive Date: 20120128
  Receipt Date: 20110719
  Transmission Date: 20120608
  Serious: No
  Sender: FDA-Public Use
  Company Number: US-ABBOTT-11P-163-0840544-00

PATIENT
  Sex: Female

DRUGS (4)
  1. FORTEO [Concomitant]
     Indication: OSTEOARTHRITIS
  2. METHOTREXATE [Concomitant]
     Indication: RHEUMATOID ARTHRITIS
     Dosage: 3 TABS TWICE A MONTH
  3. HUMIRA [Suspect]
     Indication: RHEUMATOID ARTHRITIS
     Dates: start: 20101022
  4. PREDNISONE TAB [Concomitant]
     Indication: RHEUMATOID ARTHRITIS

REACTIONS (5)
  - MUSCULOSKELETAL PAIN [None]
  - ARTHRALGIA [None]
  - BACK PAIN [None]
  - RHEUMATOID ARTHRITIS [None]
  - BONE PAIN [None]
